FAERS Safety Report 9449000 (Version 1)
Quarter: 2013Q3

REPORT INFORMATION
  Report Type: Spontaneous
  Country: GB (occurrence: GB)
  Receive Date: 20130808
  Receipt Date: 20130808
  Transmission Date: 20140515
  Serious: Yes (Death)
  Sender: FDA-Public Use
  Company Number: GB-PFIZER INC-2013231279

PATIENT
  Age: 46 Year
  Sex: Male

DRUGS (1)
  1. PREGABALIN [Suspect]
     Indication: SCIATICA

REACTIONS (1)
  - Completed suicide [Fatal]
